FAERS Safety Report 12401720 (Version 2)
Quarter: 2016Q2

REPORT INFORMATION
  Report Type: Spontaneous
  Country: US (occurrence: US)
  Receive Date: 20160525
  Receipt Date: 20160527
  Transmission Date: 20160815
  Serious: No
  Sender: FDA-Public Use
  Company Number: US-SA-2015SA181185

PATIENT
  Age: 62 Year
  Sex: Female

DRUGS (1)
  1. LANTUS [Suspect]
     Active Substance: INSULIN GLARGINE
     Dosage: DOSE:18 UNIT(S)
     Route: 065
     Dates: start: 2015, end: 2015

REACTIONS (3)
  - Drug dose omission [Unknown]
  - Blood glucose increased [Unknown]
  - Malaise [Unknown]

NARRATIVE: CASE EVENT DATE: 2015
